FAERS Safety Report 23966391 (Version 1)
Quarter: 2024Q2

REPORT INFORMATION
  Report Type: Spontaneous
  Country: US (occurrence: US)
  Receive Date: 20240612
  Receipt Date: 20240612
  Transmission Date: 20240716
  Serious: No
  Sender: FDA-Public Use
  Company Number: US-PFIZER INC-202400189799

PATIENT
  Age: 19 Year
  Sex: Female

DRUGS (2)
  1. OXBRYTA [Suspect]
     Active Substance: VOXELOTOR
     Dosage: 3 X 500 MG TABLETS, 1X/DAY.
     Route: 048
     Dates: start: 20230706
  2. HYDROXYUREA [Suspect]
     Active Substance: HYDROXYUREA

REACTIONS (1)
  - Chest pain [Unknown]
